FAERS Safety Report 9445582 (Version 1)
Quarter: 2013Q3

REPORT INFORMATION
  Report Type: Spontaneous
  Country: US (occurrence: US)
  Receive Date: 20130807
  Receipt Date: 20130807
  Transmission Date: 20140515
  Serious: No
  Sender: FDA-Public Use
  Company Number: US-TEVA-424658USA

PATIENT
  Age: 27 Year
  Sex: Female
  Weight: 72.64 kg

DRUGS (2)
  1. PLAN B ONE-STEP [Suspect]
     Indication: POST COITAL CONTRACEPTION
     Dosage: 1.5 MILLIGRAM DAILY;
     Route: 048
     Dates: start: 20130802, end: 20130802
  2. LOESTRIN [Concomitant]
     Indication: CONTRACEPTION
     Dates: start: 201301

REACTIONS (1)
  - Menstruation irregular [Not Recovered/Not Resolved]
